FAERS Safety Report 8169977-5 (Version None)
Quarter: 2012Q1

REPORT INFORMATION
  Report Type: 
  Country: None (occurrence: None)
  Receive Date: 20120228
  Receipt Date: 20120222
  Transmission Date: 20120608
  Serious: No
  Sender: FDA-Public Use
  Company Number: US-BAYER-2012-018852

PATIENT

DRUGS (3)
  1. VICODIN [Concomitant]
  2. ALEVE (CAPLET) [Suspect]
     Dosage: 6 PER DAY
     Route: 048
  3. IBUPROFEN [Concomitant]

REACTIONS (1)
  - NO ADVERSE EVENT [None]
